FAERS Safety Report 6445994-8 (Version None)
Quarter: 2009Q4

REPORT INFORMATION
  Report Type: 
  Country: None (occurrence: None)
  Receive Date: 20091119
  Receipt Date: 20090623
  Transmission Date: 20100525
  Serious: No
  Sender: FDA-Public Use
  Company Number: A0793288A

PATIENT
  Age: 41 Year
  Sex: Female

DRUGS (5)
  1. BUPROPION HYDROCHLORIDE [Suspect]
     Indication: DEPRESSION
     Dosage: 150MG TWICE PER DAY
     Route: 048
  2. BUPROPION HYDROCHLORIDE [Suspect]
     Dosage: 300MG PER DAY
     Route: 048
  3. VERAPAMIL [Concomitant]
  4. HYDROCHLOROTHIAZIDE [Concomitant]
  5. NEXIUM [Concomitant]

REACTIONS (3)
  - CRYING [None]
  - DYSGEUSIA [None]
  - FEELING ABNORMAL [None]
